FAERS Safety Report 10029612 (Version 1)
Quarter: 2014Q1

REPORT INFORMATION
  Report Type: Spontaneous
  Country: US (occurrence: None)
  Receive Date: 20140320
  Receipt Date: 20140320
  Transmission Date: 20141002
  Serious: Yes (Hospitalization)
  Sender: FDA-Public Use
  Company Number: None

PATIENT
  Sex: Male

DRUGS (1)
  1. TACROLIMUS 0.5MG/ML DR. REDDYS [Suspect]
     Indication: ORGAN TRANSPLANT
     Dosage: 5 ML?QAM ?G-TUBE
     Dates: start: 20140214

REACTIONS (2)
  - Product substitution issue [None]
  - Immunosuppressant drug level increased [None]
